FAERS Safety Report 6902456-9 (Version None)
Quarter: 2010Q3

REPORT INFORMATION
  Report Type: 
  Country: None (occurrence: None)
  Receive Date: 20100803
  Receipt Date: 20100726
  Transmission Date: 20110219
  Serious: Yes (Hospitalization)
  Sender: FDA-Public Use
  Company Number: US-AMGEN-QUU427358

PATIENT
  Sex: Male

DRUGS (10)
  1. NPLATE [Suspect]
     Indication: IDIOPATHIC THROMBOCYTOPENIC PURPURA
     Dates: start: 20081107, end: 20081226
  2. NEXIUM [Concomitant]
     Route: 048
  3. VITAMIN B-12 [Concomitant]
     Route: 048
  4. FLOMAX [Concomitant]
     Route: 048
  5. LASIX [Concomitant]
     Route: 048
  6. LOPRESSOR [Concomitant]
     Route: 048
  7. FOLIC ACID [Concomitant]
     Route: 048
  8. IRON SULFATETHIAMIN COMPOUND TAB [Concomitant]
     Route: 048
  9. TYLENOL [Concomitant]
     Route: 048
  10. VICODIN [Concomitant]
     Route: 048

REACTIONS (3)
  - EPISTAXIS [None]
  - PLEURAL EFFUSION [None]
  - THROMBOCYTOPENIA [None]
